FAERS Safety Report 25973713 (Version 1)
Quarter: 2025Q4

REPORT INFORMATION
  Report Type: Spontaneous
  Country: US (occurrence: US)
  Receive Date: 20251029
  Receipt Date: 20251029
  Transmission Date: 20260117
  Serious: Yes (Hospitalization, Other)
  Sender: RANBAXY
  Company Number: US-SUN PHARMACEUTICAL INDUSTRIES LTD-2025R1-533567

PATIENT
  Age: 33 Year
  Sex: Female

DRUGS (3)
  1. CARBOPLATIN [Suspect]
     Active Substance: CARBOPLATIN
     Indication: Breast cancer
     Dosage: UNK (500 MG)
     Route: 042
     Dates: start: 20220209, end: 20230213
  2. DOCETAXEL [Suspect]
     Active Substance: DOCETAXEL
     Indication: Breast cancer
     Dosage: UNK (135 MG)
     Route: 042
     Dates: start: 20220209, end: 20230213
  3. TRASTUZUMAB [Suspect]
     Active Substance: TRASTUZUMAB
     Indication: Breast cancer
     Dosage: UNK (550 MG)
     Route: 042
     Dates: start: 20220209, end: 20230213

REACTIONS (5)
  - Dyspnoea exertional [Recovering/Resolving]
  - Angina pectoris [Recovering/Resolving]
  - Ventricular hypokinesia [Recovering/Resolving]
  - Arteriosclerosis [Recovering/Resolving]
  - Cardiotoxicity [Recovering/Resolving]
